FAERS Safety Report 17872977 (Version 2)
Quarter: 2020Q2

REPORT INFORMATION
  Report Type: Spontaneous
  Country: JP (occurrence: JP)
  Receive Date: 20200608
  Receipt Date: 20200616
  Transmission Date: 20200714
  Serious: Yes (Death, Hospitalization)
  Sender: FDA-Public Use
  Company Number: JP-ACTELION-A-CH2020-205912

PATIENT
  Age: 82 Year
  Sex: Male
  Weight: 58 kg

DRUGS (6)
  1. UPTRAVI [Suspect]
     Active Substance: SELEXIPAG
     Indication: PULMONARY HYPERTENSION
  2. LYRICA [Concomitant]
     Active Substance: PREGABALIN
     Indication: LUMBAR SPINAL STENOSIS
     Dosage: 50 MG, QD
  3. REBAMIPIDE [Concomitant]
     Active Substance: REBAMIPIDE
     Indication: LUMBAR SPINAL STENOSIS
     Dosage: 300 MG, QD
  4. UPTRAVI [Suspect]
     Active Substance: SELEXIPAG
     Indication: PULMONARY ARTERIAL HYPERTENSION
     Dosage: 0.2 MG, BID
     Route: 048
     Dates: start: 20180201, end: 20180214
  5. LOXOPROFEN NA [Concomitant]
     Active Substance: LOXOPROFEN SODIUM
     Indication: LUMBAR SPINAL STENOSIS
     Dosage: 180 MG, QD
  6. NICORANDIL [Concomitant]
     Active Substance: NICORANDIL
     Indication: MYOCARDIAL ISCHAEMIA
     Dosage: 15 MG, QD
     Dates: start: 20171207

REACTIONS (3)
  - Hypotension [Unknown]
  - Circulatory collapse [Unknown]
  - Death [Fatal]

NARRATIVE: CASE EVENT DATE: 20180215
